FAERS Safety Report 9470839 (Version 2)
Quarter: 2013Q3

REPORT INFORMATION
  Report Type: Spontaneous
  Country: FR (occurrence: FR)
  Receive Date: 20130822
  Receipt Date: 20130830
  Transmission Date: 20140515
  Serious: Yes (Hospitalization)
  Sender: FDA-Public Use
  Company Number: FR-B.I. PHARMACEUTICALS,INC./RIDGEFIELD-2013-FF-02124FF

PATIENT
  Age: 78 Year
  Sex: Female

DRUGS (6)
  1. PRADAXA [Suspect]
     Indication: ARRHYTHMIA SUPRAVENTRICULAR
     Dosage: 110 MG
     Route: 048
     Dates: start: 201209, end: 20130411
  2. LERCAN [Concomitant]
  3. RAMIPRIL [Concomitant]
  4. BISOCE [Concomitant]
  5. INIPOMP [Concomitant]
  6. LYSANXIA [Concomitant]

REACTIONS (2)
  - Fat embolism [Not Recovered/Not Resolved]
  - Renal failure acute [Recovered/Resolved]
